FAERS Safety Report 7403478-4 (Version None)
Quarter: 2011Q2

REPORT INFORMATION
  Report Type: 
  Country: None (occurrence: None)
  Receive Date: 20110408
  Receipt Date: 20110329
  Transmission Date: 20111010
  Serious: Yes (Other)
  Sender: FDA-Public Use
  Company Number: B0711798A

PATIENT
  Sex: Female

DRUGS (1)
  1. ALBUTEROL SULFATE AUTOHALER [Suspect]
     Dosage: 100MCG PER DAY
     Route: 048

REACTIONS (6)
  - CONVULSION [None]
  - EXPIRED DRUG ADMINISTERED [None]
  - HEADACHE [None]
  - RASH [None]
  - PAIN IN EXTREMITY [None]
  - ACCIDENTAL OVERDOSE [None]
